FAERS Safety Report 9842193 (Version 4)
Quarter: 2015Q1

REPORT INFORMATION
  Report Type: Spontaneous
  Country: US (occurrence: US)
  Receive Date: 20140124
  Receipt Date: 20150319
  Transmission Date: 20150721
  Serious: Yes (Other)
  Sender: FDA-Public Use
  Company Number: US-GLAXOSMITHKLINE-A1056922A

PATIENT
  Sex: Male

DRUGS (8)
  1. VOTRIENT [Suspect]
     Active Substance: PAZOPANIB HYDROCHLORIDE
     Indication: RENAL CANCER
     Dosage: 800 MG DAILY
     Route: 048
     Dates: start: 20130906
  2. LANTUS [Concomitant]
     Active Substance: INSULIN GLARGINE
  3. VOTRIENT [Suspect]
     Active Substance: PAZOPANIB HYDROCHLORIDE
     Indication: MALIGNANT URINARY TRACT NEOPLASM
     Dosage: 800 MG, QD
  4. APIDRA [Concomitant]
     Active Substance: INSULIN GLULISINE
  5. VITAMIN D [Concomitant]
     Active Substance: CHOLECALCIFEROL
  6. NEXIUM [Concomitant]
     Active Substance: ESOMEPRAZOLE MAGNESIUM
  7. BENICAR [Concomitant]
     Active Substance: OLMESARTAN MEDOXOMIL
  8. METFORMIN [Concomitant]
     Active Substance: METFORMIN HYDROCHLORIDE

REACTIONS (12)
  - Dyspnoea [Unknown]
  - Abdominal discomfort [Unknown]
  - Hair colour changes [Unknown]
  - Blood pressure increased [Unknown]
  - Diarrhoea [Unknown]
  - Depression [Unknown]
  - Anxiety [Unknown]
  - Vision blurred [Unknown]
  - Dizziness [Unknown]
  - Tunnel vision [Unknown]
  - Amnesia [Unknown]
  - Nausea [Unknown]
